FAERS Safety Report 17451046 (Version 2)
Quarter: 2020Q1

REPORT INFORMATION
  Report Type: Report from Study
  Country: GT (occurrence: GT)
  Receive Date: 20200224
  Receipt Date: 20200228
  Transmission Date: 20200409
  Serious: Yes (Life-Threatening, Hospitalization, Other)
  Sender: FDA-Public Use
  Company Number: NVSC2020GT048639

PATIENT
  Age: 77 Year
  Sex: Female

DRUGS (6)
  1. FUROSEMIDE. [Concomitant]
     Active Substance: FUROSEMIDE
     Indication: PRODUCT USED FOR UNKNOWN INDICATION
     Route: 065
  2. VYMADA [Suspect]
     Active Substance: SACUBITRIL\VALSARTAN
     Indication: CARDIAC FAILURE
     Dosage: 100 MG, Q12H
     Route: 065
     Dates: start: 20200114
  3. VASTAREL [Concomitant]
     Active Substance: TRIMETAZIDINE DIHYDROCHLORIDE
     Indication: PRODUCT USED FOR UNKNOWN INDICATION
     Dosage: UNK
     Route: 065
  4. BISOPROLOL [Concomitant]
     Active Substance: BISOPROLOL
     Indication: PRODUCT USED FOR UNKNOWN INDICATION
     Route: 065
  5. VYMADA [Suspect]
     Active Substance: SACUBITRIL\VALSARTAN
     Dosage: 100 MG
     Route: 065
     Dates: start: 202002
  6. CLOPIDOGREL [Concomitant]
     Active Substance: CLOPIDOGREL BISULFATE
     Indication: PRODUCT USED FOR UNKNOWN INDICATION
     Dosage: 75 MG
     Route: 065

REACTIONS (16)
  - Parkinson^s disease [Unknown]
  - Loss of consciousness [Unknown]
  - Hemiplegia [Unknown]
  - Cerebrospinal fluid retention [Unknown]
  - Cerebrovascular accident [Unknown]
  - Cerebral cyst [Unknown]
  - Vomiting [Unknown]
  - Mood altered [Unknown]
  - Paraesthesia [Unknown]
  - Renal failure [Unknown]
  - Syncope [Unknown]
  - Depressed mood [Unknown]
  - Mobility decreased [Unknown]
  - Malaise [Unknown]
  - Nausea [Unknown]
  - Poisoning [Unknown]

NARRATIVE: CASE EVENT DATE: 202002
